FAERS Safety Report 15405970 (Version 1)
Quarter: 2018Q3

REPORT INFORMATION
  Report Type: Spontaneous
  Country: US (occurrence: US)
  Receive Date: 20180920
  Receipt Date: 20180920
  Transmission Date: 20181010
  Serious: No
  Sender: FDA-Public Use
  Company Number: US-PFIZER INC-2018374805

PATIENT
  Age: 55 Year
  Sex: Female
  Weight: 52.16 kg

DRUGS (7)
  1. LYRICA [Suspect]
     Active Substance: PREGABALIN
     Dosage: 1 CAPSULE IN THE MORNING AND 2 CAPSULES AT BEDTIME DAILY
  2. PERCOCET [OXYCODONE HYDROCHLORIDE;PARACETAMOL] [Concomitant]
     Indication: NEURALGIA
     Dosage: 10MG TABLETS TAKEN BY MOUTH 4 TIMES A DAY
     Route: 048
  3. PERCOCET [OXYCODONE HYDROCHLORIDE;PARACETAMOL] [Concomitant]
     Indication: BACK PAIN
  4. LYRICA [Suspect]
     Active Substance: PREGABALIN
     Indication: NEURALGIA
     Dosage: 50 MG, 1X/DAY (50MG CAPSULES?1 CAPSULE TAKEN BY MOUTH ONCE NIGHTLY)
     Route: 048
     Dates: start: 20180824
  5. LYRICA [Suspect]
     Active Substance: PREGABALIN
     Dosage: 2 CAPSULES AT BEDTIME
  6. MS CONTIN [Concomitant]
     Active Substance: MORPHINE SULFATE
     Indication: BACK PAIN
  7. MS CONTIN [Concomitant]
     Active Substance: MORPHINE SULFATE
     Indication: NEURALGIA
     Dosage: 30 MG, 3X/DAY (30MG TABLET TAKEN BY MOUTH THREE TIMES A DAY)
     Route: 048

REACTIONS (1)
  - Drug effect incomplete [Not Recovered/Not Resolved]

NARRATIVE: CASE EVENT DATE: 20180824
